FAERS Safety Report 23552617 (Version 1)
Quarter: 2024Q1

REPORT INFORMATION
  Report Type: Report from Study
  Country: ES (occurrence: ES)
  Receive Date: 20240222
  Receipt Date: 20240222
  Transmission Date: 20240410
  Serious: Yes (Other)
  Sender: FDA-Public Use
  Company Number: ES-SUN PHARMACEUTICAL INDUSTRIES LTD-2024RR-432028

PATIENT
  Age: 21 Year
  Sex: Male

DRUGS (4)
  1. MEROPENEM [Suspect]
     Active Substance: MEROPENEM
     Indication: Burkholderia cepacia complex infection
     Dosage: 2 GRAM, TID
     Route: 065
  2. SULFAMETHOXAZOLE\TRIMETHOPRIM [Suspect]
     Active Substance: SULFAMETHOXAZOLE\TRIMETHOPRIM
     Indication: Burkholderia cepacia complex infection
     Dosage: 2 GRAM, TID
     Route: 065
  3. CEFTAZIDIME [Suspect]
     Active Substance: CEFTAZIDIME
     Indication: Burkholderia cepacia complex infection
     Dosage: 2 GRAM, TID
     Route: 065
  4. AVIBACTAM [Concomitant]
     Active Substance: AVIBACTAM
     Indication: Burkholderia cepacia complex infection
     Dosage: UNK
     Route: 065

REACTIONS (1)
  - Drug resistance [Unknown]
